FAERS Safety Report 7305195-8 (Version None)
Quarter: 2011Q1

REPORT INFORMATION
  Report Type: 
  Country: None (occurrence: None)
  Receive Date: 20110222
  Receipt Date: 20110217
  Transmission Date: 20110831
  Serious: Yes (Death, Hospitalization)
  Sender: FDA-Public Use
  Company Number: PL-PFIZER INC-2006037088

PATIENT
  Age: 58 Year
  Sex: Male
  Weight: 62 kg

DRUGS (36)
  1. METOCLOPRAMIDE HCL [Concomitant]
     Dosage: UNK
     Route: 042
     Dates: start: 20060122, end: 20060224
  2. FRAXIPARINE [Concomitant]
     Dosage: UNK
     Route: 058
     Dates: start: 20060128
  3. ESPUMISAN [Concomitant]
     Dosage: UNK
     Route: 048
     Dates: start: 20060224
  4. PYRALGIN [Concomitant]
     Dosage: UNK
     Route: 048
     Dates: start: 20060124
  5. HYDROCORTISONE [Concomitant]
     Dosage: UNK
     Route: 042
     Dates: start: 20060124, end: 20060224
  6. AMIZEPIN [Concomitant]
     Dosage: UNK
     Route: 048
     Dates: start: 20060128
  7. PARACETAMOL [Concomitant]
     Dosage: UNK
     Route: 048
     Dates: start: 20060202
  8. SUNITINIB MALATE [Suspect]
     Indication: RENAL CELL CARCINOMA
     Dosage: 50 MG, 1X/DAY
     Route: 048
     Dates: start: 20051123, end: 20060121
  9. ZOFRAN [Concomitant]
     Dosage: UNK
     Route: 042
     Dates: start: 20060122, end: 20060124
  10. DEXTRAN INJ [Concomitant]
     Dosage: UNK
     Route: 042
     Dates: start: 20060122, end: 20060124
  11. DEXTRAN INJ [Concomitant]
     Dosage: UNK
     Route: 042
     Dates: start: 20060301, end: 20060311
  12. TIENAM [Concomitant]
     Dosage: UNK
     Route: 042
     Dates: start: 20060124, end: 20060131
  13. SIRDALUD [Concomitant]
     Dosage: UNK
     Route: 048
     Dates: start: 20060224
  14. CONTROLOC [Concomitant]
     Dosage: UNK
     Route: 042
     Dates: start: 20060122, end: 20060224
  15. CHLORPROMAZINE HYDROCHLORIDE [Concomitant]
     Dosage: UNK
     Route: 042
     Dates: start: 20060122, end: 20060224
  16. METRONIDAZOLE [Concomitant]
     Dosage: UNK
     Route: 042
     Dates: start: 20060124, end: 20060131
  17. HYDROXYZINE [Concomitant]
     Dosage: UNK
     Route: 030
     Dates: start: 20060128, end: 20060224
  18. SEVREDOL [Concomitant]
     Dosage: UNK
     Route: 048
     Dates: start: 20060224
  19. KETONAL [Concomitant]
     Dosage: UNK
     Route: 048
     Dates: start: 20060202
  20. LOPERAMIDE [Concomitant]
     Dosage: UNK
     Route: 048
     Dates: start: 20060303
  21. SUNITINIB MALATE [Suspect]
     Dosage: 50 MG, 1X/DAY
     Route: 048
     Dates: start: 20060203, end: 20060214
  22. CYCLONAMINE [Concomitant]
     Dosage: UNK
     Route: 042
     Dates: start: 20060122, end: 20060124
  23. TRANEXAMIC ACID [Concomitant]
     Dosage: UNK
     Route: 042
     Dates: start: 20060122, end: 20060124
  24. FUROSEMIDE [Concomitant]
     Dosage: UNK
     Route: 048
     Dates: start: 20060121
  25. CITALOPRAM [Concomitant]
     Dosage: UNK
     Route: 048
     Dates: start: 20060128, end: 20060224
  26. KALDYUM [Concomitant]
     Dosage: UNK
     Route: 048
     Dates: start: 20060128
  27. CYCLONAMINE [Concomitant]
     Route: 048
     Dates: start: 20060303
  28. DEXTROSE [Concomitant]
     Dosage: UNK
     Route: 042
     Dates: start: 20060122, end: 20060202
  29. SOLUTIO RINGERI ^CIV^ [Concomitant]
     Dosage: UNK
     Route: 042
     Dates: start: 20060122, end: 20060224
  30. NO-SPA [Concomitant]
     Dosage: UNK
     Route: 042
     Dates: start: 20060124, end: 20060224
  31. DURAGESIC-100 [Concomitant]
     Dosage: UNK
     Route: 062
     Dates: start: 20051001
  32. POLPRAZOL [Concomitant]
     Dosage: UNK
     Route: 048
     Dates: start: 20060224
  33. SUNITINIB MALATE [Suspect]
     Dosage: 50 MG, 1X/DAY
     Route: 048
     Dates: start: 20060228, end: 20060310
  34. TRANEXAMIC ACID [Concomitant]
     Dosage: UNK
     Route: 048
     Dates: start: 20060303
  35. PERNAZINUM [Concomitant]
     Dosage: UNK
     Route: 048
     Dates: start: 20060128, end: 20060224
  36. CALCIUM [Concomitant]
     Dosage: UNK
     Route: 048
     Dates: start: 20060130

REACTIONS (8)
  - SUBILEUS [None]
  - GASTROINTESTINAL HAEMORRHAGE [None]
  - DYSPNOEA [None]
  - DEHYDRATION [None]
  - GENERAL PHYSICAL HEALTH DETERIORATION [None]
  - CARDIOVASCULAR DISORDER [None]
  - CARDIOVASCULAR INSUFFICIENCY [None]
  - VOMITING [None]
